FAERS Safety Report 7901788-5 (Version None)
Quarter: 2011Q4

REPORT INFORMATION
  Report Type: 
  Country: None (occurrence: None)
  Receive Date: 20111108
  Receipt Date: 20111101
  Transmission Date: 20120403
  Serious: Yes (Disabling, Other)
  Sender: FDA-Public Use
  Company Number: US-BAYER-200817477NA

PATIENT
  Age: 73 Year
  Sex: Male

DRUGS (37)
  1. OMNISCAN [Suspect]
     Indication: NUCLEAR MAGNETIC RESONANCE IMAGING
     Dosage: 20CC
     Dates: start: 20020715, end: 20020715
  2. PROHANCE [Suspect]
     Indication: NUCLEAR MAGNETIC RESONANCE IMAGING
  3. FLONASE [Concomitant]
     Dosage: TWICE A DAY
     Route: 045
  4. PLAVIX [Concomitant]
     Dosage: 75MG/DAILY
     Route: 048
  5. METOPROLOL [Concomitant]
     Dosage: 50MG
     Route: 048
  6. OPTIMARK [Suspect]
     Indication: NUCLEAR MAGNETIC RESONANCE IMAGING
  7. OPTIMARK [Suspect]
     Indication: ANGIOGRAM
  8. ZOCOR [Concomitant]
     Dosage: 40 MG
     Route: 048
  9. GADOLINIUM IN UNSPECIFIED DRUG [Suspect]
     Dosage: 20CC INJECTED
     Dates: start: 20020715
  10. OMNISCAN [Suspect]
     Indication: ANGIOGRAM
  11. COUMADIN [Concomitant]
     Dosage: 5 MG
     Route: 048
  12. SINGULAIR [Concomitant]
     Dosage: 10 MG
     Route: 048
  13. RENAGEL [Concomitant]
     Dosage: 800MG/4 TABS 3 TIMES PER DAY
     Route: 048
  14. SERTRALINE HYDROCHLORIDE [Concomitant]
  15. FUROSEMIDE [Concomitant]
     Dosage: 80MG
     Route: 048
  16. GADOLINIUM IN UNSPECIFIED DRUG [Suspect]
     Indication: ANGIOGRAM
     Dosage: UNK
     Dates: start: 20010514
  17. MULTIHANCE [Suspect]
     Indication: ANGIOGRAM
  18. PROCRIT [Concomitant]
  19. ALLEGRA [Concomitant]
     Dosage: 60 MG
     Route: 048
  20. GADOLINIUM IN UNSPECIFIED DRUG [Suspect]
     Indication: ANGIOPLASTY
     Dosage: UNK
     Dates: start: 20040621
  21. MAGNEVIST [Suspect]
     Indication: NUCLEAR MAGNETIC RESONANCE IMAGING
  22. PROCRIT [Concomitant]
  23. GADOLINIUM IN UNSPECIFIED DRUG [Suspect]
     Indication: IMAGING PROCEDURE
  24. PROHANCE [Suspect]
     Indication: ANGIOGRAM
  25. IRON [CITRIC ACID,FERROUS SULFATE] [Concomitant]
     Indication: IRON DEFICIENCY
     Dosage: UNK
     Dates: start: 20040101
  26. VALSARTAN [Concomitant]
     Dosage: 80MG
     Route: 048
  27. GADOLINIUM IN UNSPECIFIED DRUG [Suspect]
     Indication: NUCLEAR MAGNETIC RESONANCE IMAGING
     Dosage: UNK
     Dates: start: 20000526
  28. GADOLINIUM IN UNSPECIFIED DRUG [Suspect]
     Dosage: UNK
     Dates: start: 20041106
  29. MAGNEVIST [Suspect]
     Indication: ANGIOGRAM
  30. MULTIHANCE [Suspect]
     Indication: NUCLEAR MAGNETIC RESONANCE IMAGING
  31. VITAPLEX [Concomitant]
  32. GADOLINIUM IN UNSPECIFIED DRUG [Suspect]
     Indication: NUCLEAR MAGNETIC RESONANCE IMAGING BRAIN
     Dosage: UNK
     Dates: start: 19990710, end: 19990710
  33. GADOLINIUM IN UNSPECIFIED DRUG [Suspect]
     Dosage: UNK
     Dates: start: 20020718
  34. GADOLINIUM IN UNSPECIFIED DRUG [Suspect]
     Dosage: 30CC
     Dates: start: 20031120
  35. ACTOS [Concomitant]
     Dosage: 15MG
     Route: 048
  36. GLIPIZIDE [Concomitant]
     Dosage: 5 MG
     Route: 048
  37. RAMIPRIL [Concomitant]
     Dosage: 2.5MG
     Route: 048

REACTIONS (11)
  - PAIN [None]
  - JOINT CONTRACTURE [None]
  - MOBILITY DECREASED [None]
  - ANHEDONIA [None]
  - SKIN INDURATION [None]
  - NEPHROGENIC SYSTEMIC FIBROSIS [None]
  - SKIN TIGHTNESS [None]
  - EMOTIONAL DISTRESS [None]
  - ANXIETY [None]
  - JOINT RANGE OF MOTION DECREASED [None]
  - INJURY [None]
